FAERS Safety Report 6178095-7 (Version None)
Quarter: 2009Q2

REPORT INFORMATION
  Report Type: 
  Country: None (occurrence: None)
  Receive Date: 20090501
  Receipt Date: 20090501
  Transmission Date: 20091009
  Serious: Yes (Hospitalization)
  Sender: FDA-Public Use
  Company Number: None

PATIENT
  Age: 48 Year
  Sex: Female
  Weight: 101.9 kg

DRUGS (2)
  1. BEXAROTENE [Suspect]
     Indication: BREAST CANCER
     Dosage: 150 MG EVERY DAY PO
     Route: 048
     Dates: start: 20090330, end: 20090427
  2. FUROSEMIDE [Suspect]
     Indication: DIURETIC THERAPY
     Dosage: 40 MG BID PO
     Route: 048
     Dates: start: 20050921

REACTIONS (2)
  - HYPERTRIGLYCERIDAEMIA [None]
  - RENAL FAILURE ACUTE [None]
